FAERS Safety Report 19404910 (Version 2)
Quarter: 2021Q2

REPORT INFORMATION
  Report Type: Spontaneous
  Country: US (occurrence: US)
  Receive Date: 20210611
  Receipt Date: 20210629
  Transmission Date: 20210717
  Serious: No
  Sender: FDA-Public Use
  Company Number: US-SA-2021SA190448

PATIENT
  Age: 43 Year
  Sex: Male

DRUGS (1)
  1. XYZAL ALLERGY 24HR [Suspect]
     Active Substance: LEVOCETIRIZINE DIHYDROCHLORIDE
     Indication: DERMATITIS ALLERGIC
     Dosage: UNK

REACTIONS (2)
  - Product adhesion issue [Unknown]
  - Drug ineffective [Unknown]
